FAERS Safety Report 9030850 (Version 1)
Quarter: 2013Q1

REPORT INFORMATION
  Report Type: Spontaneous
  Country: AU (occurrence: AU)
  Receive Date: 20130123
  Receipt Date: 20130123
  Transmission Date: 20140127
  Serious: Yes (Hospitalization)
  Sender: FDA-Public Use
  Company Number: AU-ROCHE-1182002

PATIENT
  Age: 50 Year
  Sex: Female
  Weight: 79 kg

DRUGS (8)
  1. RIBAVIRIN [Suspect]
     Indication: HEPATITIS C
     Route: 048
     Dates: start: 20120727
  2. RIBAVIRIN [Suspect]
     Indication: HEPATITIS C
  3. VICTRELIS [Suspect]
     Indication: HEPATIC CIRRHOSIS
     Dosage: 10 WEEK OF THERAPY
     Route: 048
     Dates: start: 20120726
  4. ATACAND [Concomitant]
  5. ESOMEPRAZOLE MAGNESIUM TRIHYDRATE [Concomitant]
  6. METOCLOPRAMIDE HYDROCHLORIDE [Concomitant]
  7. ROSUVASTATIN [Concomitant]
  8. VENLAFAXINE HYDROCHLORIDE [Concomitant]

REACTIONS (7)
  - Limb discomfort [Unknown]
  - Hypokalaemia [Unknown]
  - Sinus tachycardia [Unknown]
  - Pneumonia haemophilus [Unknown]
  - Hypotension [Unknown]
  - Lip blister [Unknown]
  - Fall [Unknown]
